FAERS Safety Report 9672449 (Version 2)
Quarter: 2013Q4

REPORT INFORMATION
  Report Type: Spontaneous
  Country: JP (occurrence: JP)
  Receive Date: 20131106
  Receipt Date: 20131106
  Transmission Date: 20140711
  Serious: Yes (Hospitalization)
  Sender: FDA-Public Use
  Company Number: JP-TAKEDA-TCI2012A02957

PATIENT
  Age: 77 Year
  Sex: Male
  Weight: 67 kg

DRUGS (9)
  1. TAKEPRON OD TABLETS 15 [Suspect]
     Indication: PROPHYLAXIS AGAINST GASTROINTESTINAL ULCER
     Dosage: 15 MG, QD
     Route: 048
     Dates: start: 20120517, end: 20120531
  2. PLETAAL [Suspect]
     Indication: THROMBOSIS PROPHYLAXIS
     Route: 048
     Dates: start: 20120529, end: 20120531
  3. CRESTOR [Suspect]
     Indication: LOW DENSITY LIPOPROTEIN INCREASED
     Route: 048
     Dates: start: 20120517, end: 20120531
  4. CRESTOR [Suspect]
     Indication: LOW DENSITY LIPOPROTEIN INCREASED
  5. BAYASPIRIN [Concomitant]
     Indication: THROMBOSIS PROPHYLAXIS
     Route: 048
  6. ADALAT L [Concomitant]
     Route: 048
  7. JUVELA N [Concomitant]
     Route: 048
  8. GLUBES [Concomitant]
     Route: 048
  9. PLAVIX [Concomitant]
     Route: 048

REACTIONS (1)
  - Hypersensitivity vasculitis [Recovered/Resolved]
